FAERS Safety Report 7675248-3 (Version None)
Quarter: 2011Q3

REPORT INFORMATION
  Report Type: 
  Country: None (occurrence: None)
  Receive Date: 20110810
  Receipt Date: 20110729
  Transmission Date: 20111222
  Serious: Yes (Other)
  Sender: FDA-Public Use
  Company Number: US-JNJFOC-20110801361

PATIENT
  Age: 21 Year
  Sex: Male
  Weight: 63.5 kg

DRUGS (6)
  1. BENADRYL [Suspect]
     Indication: RASH
     Route: 065
     Dates: start: 20110701
  2. NEURONTIN [Suspect]
     Indication: BIPOLAR DISORDER
     Route: 065
     Dates: start: 20110701
  3. LAMICTAL [Suspect]
     Indication: AFFECTIVE DISORDER
     Route: 065
     Dates: start: 20101101, end: 20110601
  4. BENADRYL [Suspect]
     Indication: PRURITUS
     Route: 065
     Dates: start: 20110701
  5. NEURONTIN [Suspect]
     Indication: AFFECTIVE DISORDER
     Route: 065
     Dates: start: 20110701
  6. WELLBUTRIN [Concomitant]
     Indication: PRODUCT USED FOR UNKNOWN INDICATION
     Route: 065

REACTIONS (3)
  - FEELING ABNORMAL [None]
  - DEPRESSION [None]
  - OFF LABEL USE [None]
